FAERS Safety Report 4887271-2 (Version None)
Quarter: 2005Q4

REPORT INFORMATION
  Report Type: 
  Country: None (occurrence: None)
  Receive Date: 20051221
  Receipt Date: 20051025
  Transmission Date: 20060501
  Serious: No
  Sender: FDA-Public Use
  Company Number: US-YAMANOUCHI-YPA20050559

PATIENT
  Age: 55 Year
  Sex: Female
  Weight: 90.7194 kg

DRUGS (9)
  1. VESICARE [Suspect]
     Indication: POLLAKIURIA
     Dosage: 5 MG QD PO
     Route: 048
     Dates: start: 20051018
  2. DURAGESIC-100 [Concomitant]
  3. HYDROCODONE BITARTRATE + ACETAMINOPHEN [Concomitant]
  4. ALLEGRA [Concomitant]
  5. CLONAZEPAM [Concomitant]
  6. GABAPENTIN [Concomitant]
  7. PAROXETINE HCL [Concomitant]
  8. SULINDAC [Concomitant]
  9. WELLBUTRIN SR [Concomitant]

REACTIONS (1)
  - CATHETER SITE HAEMORRHAGE [None]
